FAERS Safety Report 21859651 (Version 1)
Quarter: 2023Q1

REPORT INFORMATION
  Report Type: Spontaneous
  Country: CA (occurrence: CA)
  Receive Date: 20230113
  Receipt Date: 20230113
  Transmission Date: 20230418
  Serious: Yes (Life-Threatening, Hospitalization, Other)
  Sender: FDA-Public Use
  Company Number: CA-PFIZER INC-202300014350

PATIENT
  Age: 69 Year
  Sex: Female
  Weight: 86 kg

DRUGS (9)
  1. CARBOPLATIN [Suspect]
     Active Substance: CARBOPLATIN
     Indication: Chemotherapy
     Dosage: 520 MG, SINGLE
     Route: 042
  2. PACLITAXEL [Suspect]
     Active Substance: PACLITAXEL
     Indication: Chemotherapy
     Dosage: 1 DF, SINGLE
     Route: 042
  3. CRANBERRY [Concomitant]
     Active Substance: CRANBERRY
  4. HYDROCHLOROTHIAZIDE [Concomitant]
     Active Substance: HYDROCHLOROTHIAZIDE
  5. METOCLOPRAMIDE [Concomitant]
     Active Substance: METOCLOPRAMIDE
  6. OLMESARTAN [Concomitant]
     Active Substance: OLMESARTAN
  7. ONDANSETRON [Concomitant]
     Active Substance: ONDANSETRON
  8. TRANEXAMIC ACID [Concomitant]
     Active Substance: TRANEXAMIC ACID
  9. TUMS [Concomitant]
     Active Substance: CALCIUM CARBONATE

REACTIONS (8)
  - Acute kidney injury [Recovering/Resolving]
  - Dyspnoea [Recovering/Resolving]
  - Febrile neutropenia [Recovering/Resolving]
  - Fluid replacement [Recovering/Resolving]
  - Oedema peripheral [Recovering/Resolving]
  - Staphylococcal bacteraemia [Recovering/Resolving]
  - Transfusion [Recovering/Resolving]
  - Urinary tract infection [Recovering/Resolving]
